FAERS Safety Report 13874988 (Version 1)
Quarter: 2017Q3

REPORT INFORMATION
  Report Type: Spontaneous
  Country: US (occurrence: US)
  Receive Date: 20170816
  Receipt Date: 20170816
  Transmission Date: 20171127
  Serious: Yes (Other)
  Sender: FDA-Public Use
  Company Number: US-ROCHE-GNE306080

PATIENT
  Age: 75 Year
  Sex: Female

DRUGS (2)
  1. LUCENTIS [Suspect]
     Active Substance: RANIBIZUMAB
     Indication: MACULAR DEGENERATION
     Dosage: UNK
     Route: 050
     Dates: start: 20090319, end: 20100816
  2. ANTIBIOTIC (UNK INGREDIENTS) [Concomitant]
     Indication: PROPHYLAXIS

REACTIONS (6)
  - Foreign body sensation in eyes [None]
  - Ocular discomfort [None]
  - Ocular hyperaemia [None]
  - Headache [None]
  - Non-infectious endophthalmitis [Not Recovered/Not Resolved]
  - Blindness [None]

NARRATIVE: CASE EVENT DATE: 20100816
